FAERS Safety Report 5075082-7 (Version None)
Quarter: 2006Q3

REPORT INFORMATION
  Report Type: 
  Country: None (occurrence: None)
  Receive Date: 20060804
  Receipt Date: 20060727
  Transmission Date: 20061208
  Serious: Yes (Other)
  Sender: FDA-Public Use
  Company Number: 2006092755

PATIENT
  Age: 57 Year
  Sex: Female
  Weight: 81.1939 kg

DRUGS (3)
  1. GEODON [Suspect]
     Indication: DRUG USE FOR UNKNOWN INDICATION
     Dates: start: 20030101, end: 20060101
  2. SEROQUEL [Suspect]
     Indication: DRUG USE FOR UNKNOWN INDICATION
     Dates: start: 20060101, end: 20060101
  3. NICOTINE POLACRILEX (NICOTINE POLACRILEX) [Suspect]
     Indication: SMOKING CESSATION THERAPY
     Dosage: 3 PIECES (2 MG, ONE TIME), ORAL
     Route: 048
     Dates: start: 20060706, end: 20060706

REACTIONS (3)
  - DYSTONIA [None]
  - FEELING ABNORMAL [None]
  - TARDIVE DYSKINESIA [None]
